FAERS Safety Report 7984684-7 (Version None)
Quarter: 2011Q4

REPORT INFORMATION
  Report Type: 
  Country: None (occurrence: None)
  Receive Date: 20111216
  Receipt Date: 20110906
  Transmission Date: 20120403
  Serious: No
  Sender: FDA-Public Use
  Company Number: US-GLAXOSMITHKLINE-A0943747A

PATIENT
  Age: 63 Year
  Sex: Female

DRUGS (3)
  1. PROMACTA [Suspect]
     Indication: AUTOIMMUNE THROMBOCYTOPENIA
     Dosage: 50MG PER DAY
     Route: 048
     Dates: start: 20101202
  2. PRIMIDONE [Concomitant]
  3. PROPRANOLOL [Concomitant]

REACTIONS (1)
  - CYSTITIS [None]
